FAERS Safety Report 7846149-2 (Version None)
Quarter: 2011Q4

REPORT INFORMATION
  Report Type: 
  Country: None (occurrence: None)
  Receive Date: 20111025
  Receipt Date: 20111017
  Transmission Date: 20120403
  Serious: Yes (Other)
  Sender: FDA-Public Use
  Company Number: FR-ASTRAZENECA-2011SE62585

PATIENT
  Age: 17629 Day
  Sex: Female

DRUGS (18)
  1. DEXAMETHASONE [Suspect]
     Route: 048
     Dates: start: 20110903, end: 20110904
  2. EMEND [Suspect]
     Indication: PROPHYLAXIS OF NAUSEA AND VOMITING
     Route: 048
     Dates: start: 20110827, end: 20110827
  3. IMOVANE [Suspect]
     Route: 048
     Dates: start: 20110826
  4. VANCOMYCIN [Suspect]
     Route: 042
     Dates: start: 20110905, end: 20110907
  5. DEXAMETHASONE [Suspect]
     Indication: ACUTE LYMPHOCYTIC LEUKAEMIA
     Route: 048
     Dates: start: 20110827, end: 20110828
  6. VANCOMYCIN [Suspect]
     Route: 042
     Dates: start: 20110908, end: 20110909
  7. LUTENYL [Concomitant]
     Dosage: 1 DOSAGE FORM PER DAY AS LONG LASTING TREATMENT
     Route: 048
  8. OMEPRAZOLE [Suspect]
     Route: 048
     Dates: start: 20110829
  9. VINCRISTINE [Suspect]
     Indication: ACUTE LYMPHOCYTIC LEUKAEMIA
     Route: 042
     Dates: start: 20110827, end: 20110903
  10. ESCITALOPRAM OXALATE [Concomitant]
     Indication: DEPRESSION
     Dosage: 1 DOSAGE FORM PER DAY AS LONG LASTING TREATMENT
     Route: 048
     Dates: end: 20110910
  11. EMEND [Suspect]
     Route: 048
     Dates: start: 20110928
  12. AMBISOME [Suspect]
     Indication: ANTIFUNGAL PROPHYLAXIS
     Dosage: 50
     Route: 042
     Dates: start: 20110903, end: 20110909
  13. ALUMINUM HYDROXIDE AND MAGNESIUM TRISILICATE [Concomitant]
     Dosage: 3 G / 15 ML 1 DOSAGE FORM THREE TIMES PER DAY
     Route: 048
     Dates: start: 20110904
  14. GLEEVEC [Suspect]
     Indication: ACUTE LYMPHOCYTIC LEUKAEMIA
     Route: 048
     Dates: start: 20110827
  15. PIPERACILLIN AND TAZOBACTAM [Suspect]
     Dosage: 4G / 500 MG ONE DOSAGE FORM THREE TIMES A DAY
     Route: 042
     Dates: start: 20110902
  16. VANCOMYCIN [Suspect]
     Route: 042
     Dates: start: 20110902, end: 20110904
  17. VALACYCLOVIR HYDROCHLORIDE [Suspect]
     Route: 048
     Dates: start: 20110820
  18. GAVISCON [Concomitant]
     Route: 048
     Dates: start: 20110829, end: 20110906

REACTIONS (1)
  - RENAL FAILURE [None]
